FAERS Safety Report 18777977 (Version 1)
Quarter: 2021Q1

REPORT INFORMATION
  Report Type: Report from Study
  Country: BR (occurrence: BR)
  Receive Date: 20210123
  Receipt Date: 20210123
  Transmission Date: 20210419
  Serious: Yes (Life-Threatening, Hospitalization, Disabling, Other)
  Sender: FDA-Public Use
  Company Number: NVSC2021BR012856

PATIENT
  Sex: Female

DRUGS (2)
  1. ENTRESTO [Suspect]
     Active Substance: SACUBITRIL\VALSARTAN
     Indication: PRODUCT USED FOR UNKNOWN INDICATION
     Dosage: UNK
     Route: 065
     Dates: start: 202005
  2. ENTRESTO [Suspect]
     Active Substance: SACUBITRIL\VALSARTAN
     Dosage: 200 MG, BID (97/103 MG), (1 TABLET 12/12HOURS)
     Route: 065

REACTIONS (11)
  - Pneumonia [Recovering/Resolving]
  - Cardiac failure [Unknown]
  - Gait inability [Recovering/Resolving]
  - Lung disorder [Unknown]
  - Muscle atrophy [Unknown]
  - Asthenia [Unknown]
  - Pulmonary oedema [Unknown]
  - Feeling abnormal [Unknown]
  - Cardiac arrest [Recovering/Resolving]
  - Infection [Recovering/Resolving]
  - Confusional state [Recovering/Resolving]

NARRATIVE: CASE EVENT DATE: 2020
